FAERS Safety Report 10563214 (Version 1)
Quarter: 2014Q4

REPORT INFORMATION
  Report Type: Spontaneous
  Country: US (occurrence: None)
  Receive Date: 20141103
  Receipt Date: 20141103
  Transmission Date: 20150529
  Serious: No
  Sender: FDA-Public Use
  Company Number: None

PATIENT
  Age: 51 Year
  Sex: Male

DRUGS (18)
  1. BACITRACIN. [Concomitant]
     Active Substance: BACITRACIN
  2. LANSOPRAZOLE. [Concomitant]
     Active Substance: LANSOPRAZOLE
  3. ENOXAPARIN [Concomitant]
     Active Substance: ENOXAPARIN
  4. FERROUS [Concomitant]
     Active Substance: FERROUS SULFATE\GLYCINE
  5. IPRATROPIUM [Concomitant]
     Active Substance: IPRATROPIUM
  6. WARFARIN [Concomitant]
     Active Substance: WARFARIN
  7. INSULIN GLARGINE [Suspect]
     Active Substance: INSULIN GLARGINE
     Route: 058
  8. ACETAMINOPHEN. [Concomitant]
     Active Substance: ACETAMINOPHEN
  9. DIPHENHYDRAMINE [Concomitant]
     Active Substance: DIPHENHYDRAMINE
  10. GABAPENTIN. [Concomitant]
     Active Substance: GABAPENTIN
  11. METOPROLOL [Concomitant]
     Active Substance: METOPROLOL
  12. OXYCODONE [Concomitant]
     Active Substance: OXYCODONE
  13. TRAZODONE [Concomitant]
     Active Substance: TRAZODONE HYDROCHLORIDE
  14. ALBUTEROL. [Concomitant]
     Active Substance: ALBUTEROL
  15. ASCORBIC ACID. [Concomitant]
     Active Substance: ASCORBIC ACID
  16. INSULIN REGULAR [Suspect]
     Active Substance: INSULIN NOS
     Indication: HYPERGLYCAEMIA
     Route: 058
     Dates: start: 20140826
  17. INSULIN ASPART [Concomitant]
     Active Substance: INSULIN ASPART
  18. MAGNESIUM OXIDE. [Concomitant]
     Active Substance: MAGNESIUM OXIDE

REACTIONS (1)
  - Blood glucose decreased [None]

NARRATIVE: CASE EVENT DATE: 20140817
